FAERS Safety Report 4992685-6 (Version None)
Quarter: 2006Q2

REPORT INFORMATION
  Report Type: 
  Country: None (occurrence: None)
  Receive Date: 20060504
  Receipt Date: 20060428
  Transmission Date: 20061013
  Serious: Yes (Other)
  Sender: FDA-Public Use
  Company Number: US-BOEHRINGER INGELHEIM PHARMACEUTICALS, INC.-2006-DE-02186GD

PATIENT

DRUGS (2)
  1. CLONIDINE [Suspect]
     Route: 048
  2. CALCIUM CHANNEL BLOCKERS [Suspect]
     Route: 048

REACTIONS (2)
  - LETHARGY [None]
  - RESPIRATORY DEPRESSION [None]
